FAERS Safety Report 8178229-9 (Version None)
Quarter: 2012Q1

REPORT INFORMATION
  Report Type: 
  Country: None (occurrence: None)
  Receive Date: 20120301
  Receipt Date: 20120224
  Transmission Date: 20120608
  Serious: Yes (Other)
  Sender: FDA-Public Use
  Company Number: PHHY2012BR007459

PATIENT
  Age: 37 Year
  Sex: Female

DRUGS (2)
  1. TEGRETOL-XR [Suspect]
     Dosage: 200 MG, QD
     Dates: start: 20120125
  2. TEGRETOL-XR [Suspect]
     Indication: DEPRESSION
     Dosage: 200 MG, BID

REACTIONS (8)
  - BLOOD PRESSURE FLUCTUATION [None]
  - EPISTAXIS [None]
  - BLOOD PRESSURE INCREASED [None]
  - SWELLING FACE [None]
  - ARTHRALGIA [None]
  - WEIGHT INCREASED [None]
  - PAIN [None]
  - OEDEMA PERIPHERAL [None]
